FAERS Safety Report 10379803 (Version 1)
Quarter: 2014Q1

REPORT INFORMATION
  Report Type: Spontaneous
  Country: US (occurrence: None)
  Receive Date: 20140306
  Receipt Date: 20140306
  Transmission Date: 20141002
  Serious: Yes (Hospitalization)
  Sender: FDA-Public Use
  Company Number: 163-21880-13033196

PATIENT
  Age: 80 Year
  Sex: Female
  Weight: 71.67 kg

DRUGS (9)
  1. REVLIMID (LENALIDOMIDE) (10 MILLIGRAM, CAPSULES) [Suspect]
     Indication: PLASMA CELL MYELOMA
     Dosage: 10 MG, 21 IN 21 D, PO
     Route: 048
     Dates: start: 20121026
  2. AMLODIPINE BESYLATE (AMLODIPINE BESILATE) [Concomitant]
  3. BABY ASPIRIN (ACETYLSALICYLIC ACID) [Concomitant]
  4. BYSTOLIC (NEBIVOLOL HYDROCHLORIDE) (TABLETS) [Concomitant]
  5. FISH OIL (FISH OIL) (TABLETS) [Concomitant]
  6. MULTI FOR HER (MULTIVITAMINS) [Concomitant]
  7. TRAMADOL HCL (TRAMADOL HYDROCHLORIDE) [Concomitant]
  8. VITAMIN D36 (COLECALCIFEROL) [Concomitant]
  9. VITAMIN E (TOCOPHEROL) [Concomitant]

REACTIONS (1)
  - Pneumonia [None]
